FAERS Safety Report 23146145 (Version 1)
Quarter: 2023Q4

REPORT INFORMATION
  Report Type: Report from Study
  Country: US (occurrence: US)
  Receive Date: 20231104
  Receipt Date: 20231104
  Transmission Date: 20240110
  Serious: No
  Sender: FDA-Public Use
  Company Number: US-002147023-NVSC2023US234727

PATIENT
  Age: 35 Year

DRUGS (2)
  1. KESIMPTA [Suspect]
     Active Substance: OFATUMUMAB
     Indication: Product used for unknown indication
     Dosage: UNK
     Route: 065
     Dates: start: 20230830
  2. KESIMPTA [Suspect]
     Active Substance: OFATUMUMAB
     Dosage: UNK, QMO (FIRST MONTHLY DOSE)
     Route: 065
     Dates: start: 20231027

REACTIONS (4)
  - Respiratory symptom [Unknown]
  - Malaise [Unknown]
  - Pyrexia [Unknown]
  - Throat irritation [Unknown]

NARRATIVE: CASE EVENT DATE: 20231027
